FAERS Safety Report 20565576 (Version 1)
Quarter: 2022Q1

REPORT INFORMATION
  Report Type: Spontaneous
  Country: US (occurrence: US)
  Receive Date: 20220308
  Receipt Date: 20220308
  Transmission Date: 20220424
  Serious: No
  Sender: FDA-Public Use
  Company Number: US-NOVARTISTESTPH-NVSC2022US053093

PATIENT
  Sex: Female

DRUGS (1)
  1. PROMACTA [Suspect]
     Active Substance: ELTROMBOPAG OLAMINE
     Indication: Huntington^s disease
     Dosage: 50 MG, QD
     Route: 048
     Dates: start: 20210922

REACTIONS (2)
  - Headache [Unknown]
  - Product use in unapproved indication [Unknown]
